FAERS Safety Report 7935781-3 (Version None)
Quarter: 2011Q4

REPORT INFORMATION
  Report Type: 
  Country: None (occurrence: None)
  Receive Date: 20111123
  Receipt Date: 20111110
  Transmission Date: 20120403
  Serious: Yes (Other)
  Sender: FDA-Public Use
  Company Number: JP-BAYER-2011-100550

PATIENT
  Age: 72 Year
  Sex: Male

DRUGS (7)
  1. LOXONIN [Concomitant]
     Indication: PRODUCT USED FOR UNKNOWN INDICATION
     Dosage: DAILY DOSE 180 MG
     Route: 048
     Dates: start: 20111013, end: 20111015
  2. PRIMPERAN TAB [Concomitant]
     Indication: PRODUCT USED FOR UNKNOWN INDICATION
     Dosage: DAILY DOSE 15 MG
     Route: 048
     Dates: start: 20110926
  3. CEFDINIR [Concomitant]
     Indication: PRODUCT USED FOR UNKNOWN INDICATION
     Dosage: DAILY DOSE 300 MG
     Route: 048
     Dates: start: 20111013, end: 20111016
  4. LANSOPRAZOLE [Concomitant]
     Indication: PRODUCT USED FOR UNKNOWN INDICATION
     Dosage: DAILY DOSE 30 MG
     Route: 048
     Dates: start: 20110926
  5. NEXAVAR [Suspect]
     Indication: HEPATIC NEOPLASM MALIGNANT
     Dosage: 200 MG, QD
     Route: 048
     Dates: start: 20110926, end: 20111012
  6. LOPERAMIDE HCL [Concomitant]
     Indication: PRODUCT USED FOR UNKNOWN INDICATION
     Dosage: 1.0 MG, PRN
     Route: 048
     Dates: start: 20110926
  7. LORAMET [Concomitant]
     Indication: PRODUCT USED FOR UNKNOWN INDICATION
     Dosage: DAILY DOSE 1 MG
     Route: 048
     Dates: start: 20110926

REACTIONS (1)
  - HENOCH-SCHONLEIN PURPURA [None]
